FAERS Safety Report 18186513 (Version 1)
Quarter: 2020Q3

REPORT INFORMATION
  Report Type: Spontaneous
  Country: FR (occurrence: FR)
  Receive Date: 20200824
  Receipt Date: 20200824
  Transmission Date: 20201103
  Serious: Yes (Death)
  Sender: FDA-Public Use
  Company Number: FR-ACCORD-196797

PATIENT
  Age: 71 Year
  Sex: Female
  Weight: 84 kg

DRUGS (13)
  1. TEMERIT [Concomitant]
     Active Substance: NEBIVOLOL
  2. CYCLOPHOSPHAMIDE. [Suspect]
     Active Substance: CYCLOPHOSPHAMIDE
     Indication: NEOPLASM MALIGNANT
     Route: 042
     Dates: start: 20200221, end: 20200405
  3. TOUJEO [Concomitant]
     Active Substance: INSULIN GLARGINE
  4. VELMETIA [Concomitant]
     Active Substance: METFORMIN\SITAGLIPTIN
  5. LASILIX [Concomitant]
     Active Substance: FUROSEMIDE
  6. LEVOTHYROXINE. [Concomitant]
     Active Substance: LEVOTHYROXINE
  7. PACLITAXEL/PACLITAXEL LIPOSOME [Suspect]
     Active Substance: PACLITAXEL
     Indication: NEOPLASM MALIGNANT
     Dosage: STRENGTH 6 MG / ML
     Route: 042
     Dates: start: 20200427, end: 20200616
  8. LOXEN [Concomitant]
  9. INEXIUM [Concomitant]
     Active Substance: ESOMEPRAZOLE
  10. NISISCO [Concomitant]
     Active Substance: HYDROCHLOROTHIAZIDE\VALSARTAN
  11. STILNOX [Concomitant]
     Active Substance: ZOLPIDEM TARTRATE
  12. EPIRUBICIN MEDAC [Suspect]
     Active Substance: EPIRUBICIN HYDROCHLORIDE
     Indication: NEOPLASM MALIGNANT
     Dosage: STRENGTH 2 MG / ML
     Route: 042
     Dates: start: 20200221, end: 20200405
  13. TEMESTA [Concomitant]

REACTIONS (1)
  - Cardiac failure [Fatal]

NARRATIVE: CASE EVENT DATE: 20200615
